FAERS Safety Report 6116565-8 (Version None)
Quarter: 2009Q1

REPORT INFORMATION
  Report Type: 
  Country: None (occurrence: None)
  Receive Date: 20090314
  Receipt Date: 20090126
  Transmission Date: 20090719
  Serious: No
  Sender: FDA-Public Use
  Company Number: US-ABBOTT-08P-163-0493736-00

PATIENT
  Sex: Female
  Weight: 48.578 kg

DRUGS (7)
  1. HUMIRA [Suspect]
     Indication: CROHN'S DISEASE
     Dates: start: 20081215, end: 20081215
  2. HUMIRA [Suspect]
     Dates: start: 20081229, end: 20081229
  3. HUMIRA [Suspect]
     Route: 058
     Dates: start: 20090113
  4. PREDNISONE [Concomitant]
     Indication: CROHN'S DISEASE
  5. ASACOL [Concomitant]
     Indication: CROHN'S DISEASE
  6. BENADRYL [Concomitant]
     Indication: PREMEDICATION
  7. BENADRYL [Concomitant]
     Indication: CHEST DISCOMFORT

REACTIONS (22)
  - BLOOD PRESSURE INCREASED [None]
  - CHEST DISCOMFORT [None]
  - COUGH [None]
  - DIZZINESS [None]
  - DYSPNOEA [None]
  - EPIGASTRIC DISCOMFORT [None]
  - FATIGUE [None]
  - FLUID RETENTION [None]
  - HEADACHE [None]
  - INJECTION SITE ERYTHEMA [None]
  - INJECTION SITE HAEMATOMA [None]
  - INJECTION SITE RASH [None]
  - INJECTION SITE SWELLING [None]
  - MYODESOPSIA [None]
  - NASAL CONGESTION [None]
  - NAUSEA [None]
  - PALPITATIONS [None]
  - PARAESTHESIA [None]
  - PRURITUS [None]
  - TEMPERATURE INTOLERANCE [None]
  - VISION BLURRED [None]
  - VISUAL IMPAIRMENT [None]
